FAERS Safety Report 11663050 (Version 1)
Quarter: 2015Q4

REPORT INFORMATION
  Report Type: Spontaneous
  Country: US (occurrence: US)
  Receive Date: 20151027
  Receipt Date: 20151027
  Transmission Date: 20160304
  Serious: No
  Sender: FDA-Public Use
  Company Number: US-MEDA-2010080024

PATIENT
  Age: 51 Year
  Sex: Female
  Weight: 56 kg

DRUGS (3)
  1. ONSOLIS [Suspect]
     Active Substance: FENTANYL CITRATE
     Indication: BREAKTHROUGH PAIN
     Dosage: TITRATE UP TO 4-200 MCG FILMS
     Route: 002
     Dates: start: 20100813, end: 20100815
  2. FENTORA [Concomitant]
     Active Substance: FENTANYL CITRATE
     Route: 048
  3. DURAGESIC [Concomitant]
     Active Substance: FENTANYL
     Dosage: 2 PATCHES
     Route: 062

REACTIONS (2)
  - Chest discomfort [Recovered/Resolved]
  - Somnolence [Recovered/Resolved]

NARRATIVE: CASE EVENT DATE: 20100813
